FAERS Safety Report 7705016-5 (Version None)
Quarter: 2011Q3

REPORT INFORMATION
  Report Type: 
  Country: None (occurrence: None)
  Receive Date: 20110823
  Receipt Date: 20110817
  Transmission Date: 20111222
  Serious: Yes (Hospitalization, Other)
  Sender: FDA-Public Use
  Company Number: US-ABBOTT-11P-163-0847271-00

PATIENT
  Sex: Female

DRUGS (4)
  1. DEPAKOTE ER [Suspect]
     Indication: MIGRAINE
     Route: 048
     Dates: start: 20050101, end: 20110701
  2. SEROQUEL [Concomitant]
     Indication: DEPRESSION
     Dosage: EXTENDED RELEASE
  3. GABAPENTIN [Concomitant]
     Indication: PRODUCT USED FOR UNKNOWN INDICATION
  4. DEPAKOTE ER [Suspect]
     Indication: BIPOLAR DISORDER

REACTIONS (8)
  - CONVULSION [None]
  - LOSS OF CONSCIOUSNESS [None]
  - EPILEPSY [None]
  - HEADACHE [None]
  - MALAISE [None]
  - DRUG ADMINISTRATION ERROR [None]
  - BLOOD POTASSIUM DECREASED [None]
  - MIGRAINE [None]
